FAERS Safety Report 12763205 (Version 4)
Quarter: 2017Q2

REPORT INFORMATION
  Report Type: Spontaneous
  Country: US (occurrence: US)
  Receive Date: 20160920
  Receipt Date: 20170419
  Transmission Date: 20170830
  Serious: Yes (Hospitalization)
  Sender: FDA-Public Use
  Company Number: US-SA-2016SA161884

PATIENT
  Age: 8 Month
  Sex: Female
  Weight: 7.5 kg

DRUGS (1)
  1. LUMIZYME [Suspect]
     Active Substance: ALGLUCOSIDASE ALFA
     Indication: GLYCOGEN STORAGE DISEASE TYPE II
     Route: 041
     Dates: start: 20160512

REACTIONS (6)
  - Central venous catheterisation [Unknown]
  - Vomiting [Unknown]
  - Rhinorrhoea [Recovered/Resolved]
  - Pyrexia [Unknown]
  - Incorrect drug administration rate [Unknown]
  - Pyrexia [Recovered/Resolved]

NARRATIVE: CASE EVENT DATE: 20160829
